FAERS Safety Report 5024478-8 (Version None)
Quarter: 2006Q2

REPORT INFORMATION
  Report Type: 
  Country: None (occurrence: None)
  Receive Date: 20060613
  Receipt Date: 20060224
  Transmission Date: 20061013
  Serious: Yes (Disabling, Other)
  Sender: FDA-Public Use
  Company Number: PHHO2006JP03508

PATIENT
  Age: 73 Year
  Sex: Male

DRUGS (2)
  1. DIOVAN [Suspect]
     Dosage: 40 MG, QD
     Route: 048
     Dates: start: 20021204, end: 20050530
  2. AMLODIN [Concomitant]

REACTIONS (2)
  - DIALYSIS [None]
  - RENAL IMPAIRMENT [None]
